FAERS Safety Report 6684544-8 (Version None)
Quarter: 2010Q2

REPORT INFORMATION
  Report Type: 
  Country: None (occurrence: None)
  Receive Date: 20100416
  Receipt Date: 20100408
  Transmission Date: 20101027
  Serious: Yes (Death)
  Sender: FDA-Public Use
  Company Number: DE-ROCHE-696180

PATIENT
  Age: 71 Year
  Sex: Female

DRUGS (1)
  1. CAPECITABINE [Suspect]
     Dosage: RECEIVED FOUR CYCLES; DOSE: 1250 MG/M2 BID X 14 DAYS Q 21 DAYS
     Route: 065
     Dates: start: 20071129, end: 20080304

REACTIONS (1)
  - SEPSIS [None]
